FAERS Safety Report 6849523-6 (Version None)
Quarter: 2010Q3

REPORT INFORMATION
  Report Type: 
  Country: None (occurrence: None)
  Receive Date: 20100716
  Receipt Date: 20071126
  Transmission Date: 20110219
  Serious: No
  Sender: FDA-Public Use
  Company Number: US-PFIZER INC-2007082903

PATIENT
  Sex: Female
  Weight: 63.5 kg

DRUGS (9)
  1. CHANTIX [Suspect]
     Indication: SMOKING CESSATION THERAPY
     Dates: start: 20070924, end: 20071001
  2. CHANTIX [Suspect]
     Indication: HERPES ZOSTER
  3. PAROXETINE [Concomitant]
     Indication: MENOPAUSE
  4. PAROXETINE [Concomitant]
     Indication: MIGRAINE
  5. VERAPAMIL - SLOW RELEASE [Concomitant]
     Indication: MENOPAUSE
  6. VERAPAMIL - SLOW RELEASE [Concomitant]
     Indication: MIGRAINE
  7. AMITRIPTYLINE HYDROCHLORIDE [Concomitant]
     Indication: MENOPAUSE
  8. AMITRIPTYLINE HYDROCHLORIDE [Concomitant]
     Indication: MIGRAINE
  9. NICOTINE [Concomitant]

REACTIONS (6)
  - BLISTER [None]
  - ERYTHEMA [None]
  - HERPES ZOSTER [None]
  - IRRITABILITY [None]
  - PRURITUS [None]
  - SKIN LESION [None]
